FAERS Safety Report 20667965 (Version 4)
Quarter: 2022Q2

REPORT INFORMATION
  Report Type: Spontaneous
  Country: US (occurrence: US)
  Receive Date: 20220404
  Receipt Date: 20220519
  Transmission Date: 20220720
  Serious: No
  Sender: FDA-Public Use
  Company Number: US-GLAXOSMITHKLINE-US2022AMR058532

PATIENT
  Age: 35 Year

DRUGS (1)
  1. BENLYSTA [Suspect]
     Active Substance: BELIMUMAB
     Indication: Product used for unknown indication
     Dosage: UNK, 200 MG

REACTIONS (5)
  - Injection site pain [Unknown]
  - Multiple allergies [Unknown]
  - Phobia [Unknown]
  - Product use complaint [Unknown]
  - Product quality issue [Unknown]

NARRATIVE: CASE EVENT DATE: 20220330
